FAERS Safety Report 17596014 (Version 6)
Quarter: 2020Q3

REPORT INFORMATION
  Report Type: Spontaneous
  Country: JP (occurrence: JP)
  Receive Date: 20200330
  Receipt Date: 20200903
  Transmission Date: 20201102
  Serious: Yes (Hospitalization, Other)
  Sender: FDA-Public Use
  Company Number: JP-BRISTOL-MYERS SQUIBB COMPANY-BMS-2020-025938

PATIENT
  Age: 65 Year
  Sex: Male

DRUGS (8)
  1. OPDIVO [Suspect]
     Active Substance: NIVOLUMAB
     Dosage: 240 MILLIGRAM
     Route: 041
     Dates: start: 20190222, end: 20190222
  2. SUTENT [Suspect]
     Active Substance: SUNITINIB MALATE
     Indication: METASTATIC RENAL CELL CARCINOMA
     Dosage: 37.5 MILLIGRAM; 2?WEEK ON/1?WEEK OFF
     Route: 048
     Dates: start: 201907
  3. OPDIVO [Suspect]
     Active Substance: NIVOLUMAB
     Dosage: 240 MILLIGRAM
     Route: 041
     Dates: start: 20190315, end: 20190411
  4. YERVOY [Suspect]
     Active Substance: IPILIMUMAB
     Indication: METASTATIC RENAL CELL CARCINOMA
     Dosage: 1 MILLIGRAM/KILOGRAM
     Route: 041
     Dates: start: 20190201, end: 20190201
  5. SUTENT [Suspect]
     Active Substance: SUNITINIB MALATE
     Dosage: 25 MILLIGRAM
     Route: 048
     Dates: start: 201908
  6. YERVOY [Suspect]
     Active Substance: IPILIMUMAB
     Dosage: 1 MILLIGRAM/KILOGRAM
     Route: 041
     Dates: start: 20190222, end: 20190222
  7. OPDIVO [Suspect]
     Active Substance: NIVOLUMAB
     Indication: METASTATIC RENAL CELL CARCINOMA
     Dosage: 240 MILLIGRAM
     Route: 041
     Dates: start: 20190201, end: 20190201
  8. YERVOY [Suspect]
     Active Substance: IPILIMUMAB
     Dosage: 1 MILLIGRAM/KILOGRAM
     Route: 041
     Dates: start: 20190315, end: 20190411

REACTIONS (15)
  - Adrenal insufficiency [Recovered/Resolved]
  - Postoperative wound infection [Unknown]
  - Pyrexia [Unknown]
  - Hypothalamo-pituitary disorder [Unknown]
  - Malaise [Unknown]
  - Secondary adrenocortical insufficiency [Recovered/Resolved]
  - Urticaria [Unknown]
  - Brain oedema [Unknown]
  - Hypothyroidism [Recovering/Resolving]
  - Hypopituitarism [Unknown]
  - Impetigo [Unknown]
  - Renal impairment [Unknown]
  - Hyperthyroidism [Unknown]
  - Thyroiditis [Recovering/Resolving]
  - Hepatic function abnormal [Unknown]

NARRATIVE: CASE EVENT DATE: 2019
